FAERS Safety Report 9760767 (Version 2)
Quarter: 2014Q1

REPORT INFORMATION
  Report Type: Spontaneous
  Country: FR (occurrence: FR)
  Receive Date: 20131216
  Receipt Date: 20140219
  Transmission Date: 20141002
  Serious: Yes (Hospitalization, Other)
  Sender: FDA-Public Use
  Company Number: FR-BRISTOL-MYERS SQUIBB COMPANY-19888452

PATIENT
  Age: 35 Year
  Sex: Female
  Weight: 80 kg

DRUGS (6)
  1. REYATAZ [Suspect]
     Indication: HIV INFECTION
     Route: 048
     Dates: end: 20131108
  2. NORVIR [Suspect]
     Indication: HIV INFECTION
     Dosage: ONGOING
     Route: 048
  3. TRUVADA [Suspect]
     Indication: HIV INFECTION
     Dates: end: 20131108
  4. URSOLVAN [Suspect]
     Indication: PRURITUS
     Dosage: 1 DF=2 TABS
     Route: 048
     Dates: start: 20131018, end: 20131107
  5. PREZISTA [Suspect]
     Indication: HIV INFECTION
     Dosage: ONGOING
     Route: 048
     Dates: start: 20131108
  6. COMBIVIR [Suspect]
     Indication: HIV INFECTION
     Dosage: 1 DF=1TABS?ONGOING
     Route: 048
     Dates: start: 20131108

REACTIONS (8)
  - Renal failure [Recovered/Resolved]
  - General physical health deterioration [Recovered/Resolved]
  - Tachypnoea [Recovered/Resolved]
  - Overdose [Unknown]
  - Hepatocellular injury [Recovered/Resolved]
  - Normal newborn [Unknown]
  - Pregnancy [Recovered/Resolved]
  - Pruritus generalised [Recovered/Resolved]
